FAERS Safety Report 12633747 (Version 3)
Quarter: 2016Q4

REPORT INFORMATION
  Report Type: Report from Study
  Country: AU (occurrence: AU)
  Receive Date: 20160808
  Receipt Date: 20161111
  Transmission Date: 20170207
  Serious: Yes (Hospitalization, Other)
  Sender: FDA-Public Use
  Company Number: AU-BAYER-2016-145736

PATIENT
  Age: 81 Year
  Sex: Female

DRUGS (7)
  1. LASIX [Concomitant]
     Active Substance: FUROSEMIDE
     Indication: FLUID RETENTION
     Dosage: 40 MG, BID
  2. ADEMPAS [Suspect]
     Active Substance: RIOCIGUAT
     Indication: PULMONARY HYPERTENSION
     Dosage: UNK
     Route: 048
     Dates: start: 20160712
  3. COLOXYL [DOCUSATE SODIUM] [Concomitant]
     Indication: CONSTIPATION
  4. METAMUCIL [Concomitant]
     Active Substance: PLANTAGO SEED
     Indication: CONSTIPATION
  5. TARGIN [Concomitant]
     Active Substance: NALOXONE HYDROCHLORIDE\OXYCODONE HYDROCHLORIDE
     Indication: PAIN MANAGEMENT
  6. ADEMPAS [Suspect]
     Active Substance: RIOCIGUAT
     Indication: PULMONARY HYPERTENSION
     Dosage: 1 MG, BID
     Route: 048
  7. ADEMPAS [Suspect]
     Active Substance: RIOCIGUAT
     Indication: PULMONARY HYPERTENSION
     Dosage: 2 MG, UNK

REACTIONS (17)
  - Faeces hard [Not Recovered/Not Resolved]
  - Dry mouth [Unknown]
  - Off label use [None]
  - Headache [Not Recovered/Not Resolved]
  - Pain in extremity [None]
  - Fluid retention [None]
  - Constipation [Not Recovered/Not Resolved]
  - Nerve injury [Not Recovered/Not Resolved]
  - Abdominal distension [Unknown]
  - Nausea [Not Recovered/Not Resolved]
  - Fibromyalgia [None]
  - Weight increased [Unknown]
  - Headache [None]
  - Pharyngeal oedema [Unknown]
  - Blood pressure fluctuation [Not Recovered/Not Resolved]
  - Nausea [Unknown]
  - Oedema peripheral [Unknown]

NARRATIVE: CASE EVENT DATE: 201603
